FAERS Safety Report 12161586 (Version 2)
Quarter: 2016Q1

REPORT INFORMATION
  Report Type: Spontaneous
  Country: GB (occurrence: GB)
  Receive Date: 20160309
  Receipt Date: 20160318
  Transmission Date: 20160526
  Serious: Yes (Other)
  Sender: FDA-Public Use
  Company Number: GB-AUROBINDO-AUR-APL-2016-02249

PATIENT

DRUGS (2)
  1. ARIPIPRAZOLE 10 MG [Suspect]
     Active Substance: ARIPIPRAZOLE
     Indication: ACUTE PSYCHOSIS
     Dosage: 10 MG, UNK
     Route: 048
     Dates: start: 20160211, end: 20160212
  2. ZOPICLONE [Concomitant]
     Active Substance: ZOPICLONE
     Indication: ACUTE PSYCHOSIS
     Route: 065

REACTIONS (7)
  - Joint swelling [Unknown]
  - Lip swelling [Unknown]
  - Pain [Unknown]
  - Hypersensitivity [Recovering/Resolving]
  - Off label use [Unknown]
  - Urticaria [Unknown]
  - Erythema [Unknown]

NARRATIVE: CASE EVENT DATE: 20160211
